FAERS Safety Report 21469673 (Version 3)
Quarter: 2023Q1

REPORT INFORMATION
  Report Type: Report from Study
  Country: US (occurrence: US)
  Receive Date: 20221018
  Receipt Date: 20230124
  Transmission Date: 20230417
  Serious: No
  Sender: FDA-Public Use
  Company Number: US-BIOVITRUM-2022US11923

PATIENT
  Sex: Female

DRUGS (1)
  1. KINERET [Suspect]
     Active Substance: ANAKINRA
     Indication: Rheumatoid arthritis
     Dates: start: 20220309

REACTIONS (7)
  - Gout [Unknown]
  - Musculoskeletal disorder [Unknown]
  - Injection site bruising [Unknown]
  - Arthralgia [Unknown]
  - Synovitis [Unknown]
  - Drug ineffective [Unknown]
  - Product dose omission issue [Unknown]
